FAERS Safety Report 8425029-8 (Version None)
Quarter: 2012Q2

REPORT INFORMATION
  Report Type: 
  Country: None (occurrence: None)
  Receive Date: 20120605
  Receipt Date: 20120605
  Transmission Date: 20120825
  Serious: Yes (Death)
  Sender: FDA-Public Use
  Company Number: None

PATIENT
  Age: 82 Year
  Sex: Male
  Weight: 136.4 kg

DRUGS (1)
  1. AZITHROMYCIN [Suspect]
     Indication: PNEUMONIA
     Dosage: Z-PACK - DAY 1 DOSE ONCE DAILY ORAL
     Route: 048
     Dates: start: 20120209

REACTIONS (2)
  - SUDDEN DEATH [None]
  - FALL [None]
